FAERS Safety Report 7827485-2 (Version None)
Quarter: 2011Q4

REPORT INFORMATION
  Report Type: 
  Country: None (occurrence: None)
  Receive Date: 20111020
  Receipt Date: 20111013
  Transmission Date: 20120403
  Serious: Yes (Hospitalization)
  Sender: FDA-Public Use
  Company Number: GB-B.I. PHARMACEUTICALS,INC./RIDGEFIELD-2011-RD-00196DE

PATIENT
  Sex: Female
  Weight: 66 kg

DRUGS (3)
  1. TIOPRONIN [Suspect]
     Dates: start: 20110825
  2. TRIAL PROCEDURE [Suspect]
     Indication: CYSTIC FIBROSIS
  3. TIOPRONIN [Suspect]
     Indication: CYSTIC FIBROSIS
     Dosage: 5 MCG
     Route: 055
     Dates: start: 20110601, end: 20110824

REACTIONS (2)
  - MYCOBACTERIUM TEST POSITIVE [None]
  - CHEST DISCOMFORT [None]
